FAERS Safety Report 25587237 (Version 1)
Quarter: 2025Q3

REPORT INFORMATION
  Report Type: Spontaneous
  Country: US (occurrence: None)
  Receive Date: 20250721
  Receipt Date: 20250721
  Transmission Date: 20251020
  Serious: Yes (Hospitalization)
  Sender: FDA-CTU
  Company Number: None

PATIENT
  Age: 5 Week
  Sex: Male
  Weight: 1.9 kg

DRUGS (1)
  1. BEYFORTUS [Suspect]
     Active Substance: NIRSEVIMAB-ALIP
     Dates: start: 20241111

REACTIONS (3)
  - Bronchitis viral [None]
  - Respiratory distress [None]
  - Lung infiltration [None]

NARRATIVE: CASE EVENT DATE: 20241121
